FAERS Safety Report 13352472 (Version 1)
Quarter: 2017Q1

REPORT INFORMATION
  Report Type: Spontaneous
  Country: US (occurrence: US)
  Receive Date: 20170320
  Receipt Date: 20170320
  Transmission Date: 20170429
  Serious: No
  Sender: FDA-Public Use
  Company Number: US-ALLERGAN-1674042US

PATIENT
  Age: 72 Year
  Sex: Female

DRUGS (1)
  1. OXYTROL FOR WOMEN [Suspect]
     Active Substance: OXYBUTYNIN
     Indication: HYPERTONIC BLADDER
     Dosage: ONE PATCH EVERY 4 DAYS
     Route: 062
     Dates: start: 2013

REACTIONS (3)
  - Therapeutic response decreased [Unknown]
  - Product adhesion issue [Unknown]
  - Wrong technique in product usage process [Unknown]
